FAERS Safety Report 8960594 (Version 3)
Quarter: 2013Q1

REPORT INFORMATION
  Report Type: Spontaneous
  Country: IT (occurrence: None)
  Receive Date: 20121130
  Receipt Date: 20130313
  Transmission Date: 20140127
  Serious: Yes (Disabling)
  Sender: FDA-Public Use
  Company Number: TPA2012A09450

PATIENT
  Age: 59 Year
  Sex: Male

DRUGS (10)
  1. ADENURIC (FEBUXOSTAT) [Suspect]
     Indication: TUMOUR LYSIS SYNDROME
     Route: 048
     Dates: start: 20121106, end: 20121112
  2. LANSOX (LANSOPRAZOLE) [Concomitant]
  3. TALAVIR (VALACICLOVIR HYDROCHLORIDE) [Concomitant]
  4. MYCOSTATIN (NYSTATIN) [Concomitant]
  5. BACTRIM [Concomitant]
  6. METFORMINA (METFORMIN) [Concomitant]
  7. LEVOXACIN (LEVOFLOXACIN) [Concomitant]
  8. ZOFRAN (ONDANSETRON) [Concomitant]
  9. LASIX (FUROSEMIDE) [Concomitant]
  10. LEVOPRAID (LEVOSULPIRIDE) [Concomitant]

REACTIONS (1)
  - Cerebral ischaemia [None]
